FAERS Safety Report 4781254-9 (Version None)
Quarter: 2005Q3

REPORT INFORMATION
  Report Type: 
  Country: None (occurrence: None)
  Receive Date: 20050928
  Receipt Date: 20050926
  Transmission Date: 20060218
  Serious: Yes (Other)
  Sender: FDA-Public Use
  Company Number: US-GLAXOSMITHKLINE-A0575893A

PATIENT
  Age: 55 Year
  Sex: Female

DRUGS (6)
  1. ADVAIR DISKUS 100/50 [Suspect]
     Indication: BRONCHITIS
     Dosage: 1PUFF TWICE PER DAY
     Route: 055
     Dates: start: 20050301, end: 20050826
  2. PLENDIL [Concomitant]
  3. HYZAAR [Concomitant]
  4. PRILOSEC [Concomitant]
  5. PRAVACHOL [Concomitant]
  6. ASPIRIN [Concomitant]

REACTIONS (1)
  - RETINOPATHY [None]
